FAERS Safety Report 4847557-4 (Version None)
Quarter: 2005Q4

REPORT INFORMATION
  Report Type: 
  Country: None (occurrence: None)
  Receive Date: 20051205
  Receipt Date: 20051124
  Transmission Date: 20060501
  Serious: Yes (Other)
  Sender: FDA-Public Use
  Company Number: 2005RR-01225

PATIENT
  Age: 22 Year
  Sex: Female
  Weight: 65 kg

DRUGS (19)
  1. METOCLOPRAMIDE [Suspect]
     Dosage: 10 MG
  2. REMIFENTANIL (REMIFENTANIL) [Suspect]
  3. ETOMIDATE [Suspect]
  4. ISOFLURANE [Suspect]
  5. NITROUS OXIDE W/ OXYGEN [Suspect]
  6. OXYGEN (OXYGEN) [Suspect]
  7. RANITIDINE [Suspect]
     Dosage: 300 MG, ORAL
     Route: 048
  8. SODIUM CITRATE [Suspect]
  9. SUXAMETHONIUM (SUXAMETHONIUM) [Suspect]
  10. VECURONIUM BROMIDE [Suspect]
  11. MORPHINE [Concomitant]
  12. GLYCOPYRRONIUM BROMIDE [Concomitant]
  13. NEOSTIGMINE [Concomitant]
  14. PARACETAMOL (PARACETAMOL) [Concomitant]
  15. OXYTOCIN [Concomitant]
  16. DICLOFENAC SODIUM [Concomitant]
  17. GENTAMICIN SULFATE [Concomitant]
  18. CEROXIM (CEFUROXIME AXETIL) [Concomitant]
  19. METARAMINOL [Concomitant]

REACTIONS (3)
  - CAESAREAN SECTION [None]
  - DRUG EXPOSURE DURING PREGNANCY [None]
  - OPERATIVE HAEMORRHAGE [None]
